FAERS Safety Report 5703823-1 (Version None)
Quarter: 2008Q2

REPORT INFORMATION
  Report Type: 
  Country: None (occurrence: None)
  Receive Date: 20080414
  Receipt Date: 20080314
  Transmission Date: 20081010
  Serious: No
  Sender: FDA-Public Use
  Company Number: US-BAYER-200817398NA

PATIENT
  Age: 59 Year
  Sex: Female

DRUGS (3)
  1. AVELOX [Suspect]
     Indication: DRUG USE FOR UNKNOWN INDICATION
     Route: 048
  2. CODEINE SUL TAB [Interacting]
  3. UNKNOWN MEDICATIONS FOR NARCOLEPSY [Interacting]

REACTIONS (1)
  - DRUG INTERACTION [None]
